FAERS Safety Report 18486263 (Version 1)
Quarter: 2020Q4

REPORT INFORMATION
  Report Type: Other
  Country: US (occurrence: US)
  Receive Date: 20201110
  Receipt Date: 20201110
  Transmission Date: 20210114
  Serious: Yes (Death)
  Sender: FDA-Public Use
  Company Number: US-ALSI-202000454

PATIENT
  Age: 71 Year
  Sex: Female

DRUGS (1)
  1. CARBON DIOXIDE. [Suspect]
     Active Substance: CARBON DIOXIDE
     Indication: OFF LABEL USE
     Route: 013

REACTIONS (3)
  - Off label use [Fatal]
  - Brain oedema [Fatal]
  - Cerebral gas embolism [Fatal]
